FAERS Safety Report 13447786 (Version 1)
Quarter: 2017Q2

REPORT INFORMATION
  Report Type: Spontaneous
  Country: US (occurrence: US)
  Receive Date: 20170417
  Receipt Date: 20170417
  Transmission Date: 20170830
  Serious: No
  Sender: FDA-Public Use
  Company Number: None

PATIENT
  Age: 77 Year
  Sex: Female
  Weight: 71.73 kg

DRUGS (2)
  1. KINEVAC [Suspect]
     Active Substance: SINCALIDE
     Indication: HEPATOBILIARY SCAN
     Dosage: 2.88 MCGMS ONCE IV INFUSION OVER 30 MIN
     Route: 042
     Dates: start: 20170404
  2. KINEVAC [Suspect]
     Active Substance: SINCALIDE
     Indication: ABDOMINAL PAIN
     Dosage: 2.88 MCGMS ONCE IV INFUSION OVER 30 MIN
     Route: 042
     Dates: start: 20170404

REACTIONS (4)
  - Ocular hyperaemia [None]
  - Flushing [None]
  - Vascular rupture [None]
  - Throat tightness [None]

NARRATIVE: CASE EVENT DATE: 20170404
